FAERS Safety Report 7516591-8 (Version None)
Quarter: 2011Q2

REPORT INFORMATION
  Report Type: 
  Country: None (occurrence: None)
  Receive Date: 20110601
  Receipt Date: 20110518
  Transmission Date: 20111010
  Serious: Yes (Hospitalization, Disabling, Other)
  Sender: FDA-Public Use
  Company Number: US-CELGENEUS-163-21880-10051129

PATIENT
  Sex: Male
  Weight: 85.73 kg

DRUGS (20)
  1. DEXAMETHASONE [Concomitant]
     Dosage: 40 MILLIGRAM
     Route: 048
     Dates: start: 20091201, end: 20100223
  2. COUMADIN [Concomitant]
     Dosage: 4 MILLIGRAM
     Route: 048
  3. CHLORHEXIDINE GLUCONATE [Concomitant]
     Dosage: 0.12%/15ML
     Route: 048
  4. NITROGLYCERIN [Concomitant]
     Indication: CHEST PAIN
     Dosage: .4 MILLIGRAM
     Route: 060
  5. VITAMIN B1 TAB [Concomitant]
     Dosage: 50 MILLIGRAM
     Route: 048
  6. STEROIDS [Concomitant]
     Indication: MULTIPLE MYELOMA
     Route: 065
  7. DEXAMETHASONE [Concomitant]
     Dosage: BOLUS
     Route: 051
     Dates: start: 20100614
  8. COUMADIN [Concomitant]
     Dosage: 6 MILLIGRAM
     Route: 048
  9. INSULIN GLARGINE [Concomitant]
     Dosage: 100 UNIT/ML
     Route: 058
     Dates: end: 20100524
  10. COUMADIN [Concomitant]
     Dosage: 6 MILLIGRAM
     Route: 048
     Dates: start: 20100605, end: 20100605
  11. DEXAMETHASONE [Concomitant]
     Route: 065
     Dates: start: 20091012
  12. LISINOPRIL [Concomitant]
     Dosage: 40 MILLIGRAM
     Route: 048
  13. REVLIMID [Suspect]
     Indication: MULTIPLE MYELOMA
     Dosage: 25 MILLIGRAM
     Route: 048
     Dates: start: 20091201, end: 20100223
  14. REVLIMID [Suspect]
     Dosage: 25 MILLIGRAM
     Route: 048
     Dates: start: 20110401
  15. METOPROLOL TARTRATE [Concomitant]
     Dosage: 25 MILLIGRAM
     Route: 048
  16. ALAMAG [Concomitant]
     Dosage: 225MG-200MG/5ML
     Route: 048
  17. ZOMETA [Concomitant]
     Dosage: 4 MILLIGRAM
     Route: 051
  18. GLYBURIDE [Concomitant]
     Dosage: 5 MILLIGRAM
     Route: 048
     Dates: end: 20100524
  19. PRAVASTATIN [Concomitant]
     Dosage: 40 MILLIGRAM
     Route: 048
  20. FOLIC ACID [Concomitant]
     Dosage: 1 MILLIGRAM
     Route: 048

REACTIONS (1)
  - TONGUE NEOPLASM MALIGNANT STAGE UNSPECIFIED [None]
